FAERS Safety Report 4313150-5 (Version None)
Quarter: 2004Q1

REPORT INFORMATION
  Report Type: 
  Country: None (occurrence: None)
  Receive Date: 20040304
  Receipt Date: 20040223
  Transmission Date: 20041129
  Serious: Yes (Hospitalization, Other)
  Sender: FDA-Public Use
  Company Number: US-JNJFOC-20040205872

PATIENT
  Age: 63 Year
  Sex: Female
  Weight: 52.6173 kg

DRUGS (7)
  1. INFLIXIMAB (INFLIXIMAB, RECOMBINANT) LYOPHILIZED POWDER [Suspect]
     Indication: CROHN'S DISEASE
     Dosage: 5 MG/KG, INTRAVENOUS
     Route: 042
     Dates: start: 20030815
  2. INFLIXIMAB (INFLIXIMAB, RECOMBINANT) LYOPHILIZED POWDER [Suspect]
     Indication: CROHN'S DISEASE
     Dosage: 5 MG/KG, INTRAVENOUS
     Route: 042
     Dates: start: 20031031
  3. INFLIXIMAB (INFLIXIMAB, RECOMBINANT) LYOPHILIZED POWDER [Suspect]
     Indication: CROHN'S DISEASE
     Dosage: 5 MG/KG, INTRAVENOUS
     Route: 042
     Dates: start: 20031210
  4. FLAGYL [Suspect]
     Indication: CROHN'S DISEASE
  5. ANTIBIOTICS (ANTIBIOTICS) [Suspect]
     Indication: CROHN'S DISEASE
  6. PREDNISONE [Suspect]
     Indication: CROHN'S DISEASE
  7. MYCOPHENOLATE (MYCOPHENOLATE MOFETIL) [Suspect]
     Indication: CROHN'S DISEASE

REACTIONS (4)
  - ABNORMAL BEHAVIOUR [None]
  - DYSKINESIA [None]
  - MOTOR DYSFUNCTION [None]
  - SPEECH DISORDER [None]
